FAERS Safety Report 9637761 (Version 1)
Quarter: 2013Q4

REPORT INFORMATION
  Report Type: Spontaneous
  Country: JP (occurrence: JP)
  Receive Date: 20131022
  Receipt Date: 20131022
  Transmission Date: 20140711
  Serious: Yes (Hospitalization)
  Sender: FDA-Public Use
  Company Number: JP-NAPPMUNDI-GBR-2013-0016050

PATIENT
  Sex: Female

DRUGS (1)
  1. NORSPAN 5MG [Suspect]
     Indication: BACK PAIN
     Dosage: 5 MCG, UNK
     Route: 062
     Dates: start: 20130920, end: 20130920

REACTIONS (3)
  - Atrial fibrillation [Recovering/Resolving]
  - Chest discomfort [Unknown]
  - Nausea [Recovered/Resolved]
